FAERS Safety Report 8992486 (Version 2)
Quarter: 2013Q1

REPORT INFORMATION
  Report Type: Report from Study
  Country: JP (occurrence: JP)
  Receive Date: 20121231
  Receipt Date: 20130227
  Transmission Date: 20140127
  Serious: Yes (Death, Life-Threatening)
  Sender: FDA-Public Use
  Company Number: PHHY2012JP120664

PATIENT
  Age: 80 Year
  Sex: 0
  Weight: 66 kg

DRUGS (13)
  1. VALSARTAN, AMLODIPINE [Suspect]
     Indication: HYPERTENSION
     Dosage: 2 DF, DAILY
     Route: 048
     Dates: start: 20110419, end: 20120124
  2. CALTAN [Concomitant]
     Dosage: 3 G, UNK
     Route: 048
     Dates: start: 20120124, end: 20120125
  3. ALFAROL [Concomitant]
     Dosage: 0.25 UG, UNK
     Route: 048
     Dates: end: 20120124
  4. SENNOSIDE [Concomitant]
     Dosage: 36 MG, UNK
     Route: 048
     Dates: end: 20111101
  5. NELBON [Concomitant]
     Dosage: 5 MG, UNK
     Route: 048
     Dates: end: 20111116
  6. AMOBAN [Concomitant]
     Dosage: 10 MG, UNK
     Route: 048
     Dates: end: 20111116
  7. BASEN [Concomitant]
     Dosage: 0.6 MG, UNK
     Route: 048
  8. ALESION [Concomitant]
     Dosage: 20 MG, UNK
     Route: 048
     Dates: end: 20111018
  9. KINEDAK [Concomitant]
     Dosage: 150 MG, UNK
     Route: 048
     Dates: end: 20111018
  10. PLETAAL [Concomitant]
     Dosage: 200 MG, UNK
     Route: 048
     Dates: start: 20110602, end: 20120124
  11. PALUX [Concomitant]
     Dosage: 10 UG, UNK
     Dates: end: 20120123
  12. NESP [Concomitant]
     Dosage: 10 UG, UNK
  13. NESP [Concomitant]
     Dosage: 20 UG, UNK
     Dates: end: 20120123

REACTIONS (4)
  - Peripheral arterial occlusive disease [Fatal]
  - Gangrene [Fatal]
  - Skin discolouration [Fatal]
  - Nephrogenic anaemia [Recovering/Resolving]
